FAERS Safety Report 7478503-5 (Version None)
Quarter: 2011Q2

REPORT INFORMATION
  Report Type: 
  Country: None (occurrence: None)
  Receive Date: 20110513
  Receipt Date: 20110505
  Transmission Date: 20111010
  Serious: Yes (Other)
  Sender: FDA-Public Use
  Company Number: PHHY2011NL19400

PATIENT
  Sex: Female

DRUGS (8)
  1. LISINOPRIL [Concomitant]
     Dosage: 10 MG, UNK
     Dates: start: 20090801
  2. NEXIUM [Concomitant]
     Dosage: 40 MG, UNK
     Dates: start: 20060201
  3. MOTILIUM [Concomitant]
     Dosage: 10 MG, UNK
     Dates: start: 20060201
  4. CALCIUM WITH VITAMIN D [Concomitant]
     Dosage: 500MG/800 IU, OD
     Dates: start: 20080801
  5. IBUPROFEN [Concomitant]
     Dosage: 400 MG, BID
     Dates: start: 20060201
  6. PLAQUENIL [Concomitant]
     Dosage: 2000 MG, BID
     Dates: start: 20060201
  7. ACETAMINOPHEN [Concomitant]
     Dosage: 500 MG, BID
     Dates: start: 20051101
  8. ZOLEDRONIC ACID [Suspect]
     Indication: OSTEOPOROSIS
     Dosage: 5 MG, UNK
     Route: 042
     Dates: start: 20110128

REACTIONS (4)
  - INFLUENZA LIKE ILLNESS [None]
  - MYOSITIS [None]
  - MUSCULAR WEAKNESS [None]
  - HYPOTONIA [None]
